FAERS Safety Report 9853363 (Version 1)
Quarter: 2014Q1

REPORT INFORMATION
  Report Type: Spontaneous
  Country: GB (occurrence: GB)
  Receive Date: 20140129
  Receipt Date: 20140129
  Transmission Date: 20141002
  Serious: Yes (Life-Threatening, Hospitalization)
  Sender: FDA-Public Use
  Company Number: PHFR2014GB000798

PATIENT
  Age: 46 Year
  Sex: Female
  Weight: 113.84 kg

DRUGS (13)
  1. ESTRADIOL VALERATE [Suspect]
     Indication: HORMONE REPLACEMENT THERAPY
     Dosage: 3 MG, QD
     Route: 048
  2. HYDROXYCHLOROQUINE [Concomitant]
  3. MIRTAZAPINE [Concomitant]
  4. MST CONTINUS [Concomitant]
  5. OMEPRAZOLE [Concomitant]
  6. PARACETAMOL [Concomitant]
  7. TRAMADOL [Concomitant]
  8. SERETIDE [Concomitant]
  9. SPIRONOLACTONE [Concomitant]
  10. ADCAL-D3 [Concomitant]
  11. PREGABALIN [Concomitant]
  12. AMITRIPTYLINE [Concomitant]
  13. CHLORPHENAMINE [Concomitant]

REACTIONS (2)
  - Pulmonary embolism [Recovering/Resolving]
  - Dyspnoea [Unknown]
